FAERS Safety Report 22300470 (Version 2)
Quarter: 2023Q2

REPORT INFORMATION
  Report Type: Spontaneous
  Country: IL (occurrence: IL)
  Receive Date: 20230509
  Receipt Date: 20230519
  Transmission Date: 20230722
  Serious: Yes (Other)
  Sender: FDA-Public Use
  Company Number: IL-APIL-2313884US

PATIENT
  Sex: Female

DRUGS (8)
  1. QULIPTA [Suspect]
     Active Substance: ATOGEPANT
     Indication: Migraine
     Dosage: 10 MG
     Dates: start: 20230413, end: 20230419
  2. TOPIRAMATE [Concomitant]
     Active Substance: TOPIRAMATE
  3. MENTHOL OIL [Concomitant]
  4. METAMIZOLE [Concomitant]
     Active Substance: METAMIZOLE
  5. IBUPROFEN [Concomitant]
     Active Substance: IBUPROFEN
  6. ORTHO EVRA [Concomitant]
     Active Substance: ETHINYL ESTRADIOL\NORELGESTROMIN
     Dosage: UNK
  7. AJOVY [Concomitant]
     Active Substance: FREMANEZUMAB-VFRM
     Dosage: UNK
     Dates: start: 2021
  8. HEPATITIS A VACCINE;HEPATITIS B VACCINE [Concomitant]

REACTIONS (3)
  - Hepatitis acute [Not Recovered/Not Resolved]
  - Ocular icterus [Not Recovered/Not Resolved]
  - Antinuclear antibody increased [Not Recovered/Not Resolved]

NARRATIVE: CASE EVENT DATE: 20230401
